FAERS Safety Report 6389173-1 (Version None)
Quarter: 2009Q4

REPORT INFORMATION
  Report Type: 
  Country: None (occurrence: None)
  Receive Date: 20091006
  Receipt Date: 20091001
  Transmission Date: 20100525
  Serious: Yes (Death)
  Sender: FDA-Public Use
  Company Number: US-WYE-H11331909

PATIENT
  Sex: Male
  Weight: 201 kg

DRUGS (6)
  1. PRISTIQ [Suspect]
     Indication: MAJOR DEPRESSION
     Route: 048
     Dates: start: 20090806, end: 20090810
  2. ZOMIG [Concomitant]
     Indication: MIGRAINE
     Route: 045
     Dates: start: 20070101
  3. STERAPRED [Concomitant]
     Indication: SCIATICA
     Dosage: 12 DAY UNIPACK, 10 MG, DAILY TAPER
     Route: 048
     Dates: start: 20090807
  4. STERAPRED [Concomitant]
     Indication: BACK PAIN
  5. LISINOPRIL [Concomitant]
     Indication: HYPERTENSION
     Route: 048
     Dates: start: 20090129
  6. XANAX [Concomitant]
     Indication: ANXIETY
     Route: 048
     Dates: start: 20060101

REACTIONS (1)
  - COMPLETED SUICIDE [None]
